FAERS Safety Report 10410679 (Version 1)
Quarter: 2014Q2

REPORT INFORMATION
  Report Type: Spontaneous
  Country: US (occurrence: None)
  Receive Date: 20140530
  Receipt Date: 20140530
  Transmission Date: 20141212
  Serious: No
  Sender: FDA-Public Use
  Company Number: 227056LEO

PATIENT
  Sex: Female

DRUGS (1)
  1. PICATO (INGENOL MEBUTATE) (0.015 %, GEL) [Suspect]
     Indication: SKIN LESION
     Dosage: COMMENCED 2 DAYS PRIOR TO REPORT

REACTIONS (4)
  - Product container issue [None]
  - Drug administered at inappropriate site [None]
  - Incorrect dose administered [None]
  - Incorrect dose administered [None]
